FAERS Safety Report 23323306 (Version 1)
Quarter: 2023Q4

REPORT INFORMATION
  Report Type: Other
  Country: US (occurrence: None)
  Receive Date: 20231220
  Receipt Date: 20231220
  Transmission Date: 20240110
  Serious: No
  Sender: FDA-Public Use
  Company Number: US-ROCHE-3301938

PATIENT
  Age: 77 Year
  Sex: Male

DRUGS (16)
  1. RITUXIMAB [Suspect]
     Active Substance: RITUXIMAB
     Indication: Diffuse large B-cell lymphoma
     Route: 065
  2. CYCLOPHOSPHAMIDE [Suspect]
     Active Substance: CYCLOPHOSPHAMIDE
     Indication: Diffuse large B-cell lymphoma
     Route: 065
  3. DOXORUBICIN [Suspect]
     Active Substance: DOXORUBICIN
     Indication: Diffuse large B-cell lymphoma
     Route: 065
  4. VINCRISTINE [Suspect]
     Active Substance: VINCRISTINE
     Indication: Diffuse large B-cell lymphoma
     Route: 065
  5. PREDNISONE [Suspect]
     Active Substance: PREDNISONE
     Indication: Diffuse large B-cell lymphoma
     Route: 065
  6. TOCILIZUMAB [Suspect]
     Active Substance: TOCILIZUMAB
     Indication: Cytokine release syndrome
     Dosage: 2 DOSES ON DAY +5, 1 DOSE ON DAY +6
     Route: 065
  7. AXICABTAGENE CILOLEUCEL [Concomitant]
     Active Substance: AXICABTAGENE CILOLEUCEL
  8. ANAKINRA [Concomitant]
     Active Substance: ANAKINRA
     Dosage: ON DAY +11, TAPERED OVER 15 DAYS
     Route: 058
  9. RUXOLITINIB [Concomitant]
     Active Substance: RUXOLITINIB
  10. METHYLPREDNISOLONE [Concomitant]
     Active Substance: METHYLPREDNISOLONE
     Dosage: ON DAY +15
     Route: 042
  11. BENDAMUSTINE [Concomitant]
     Active Substance: BENDAMUSTINE
  12. GEMCITABINE [Concomitant]
     Active Substance: GEMCITABINE
  13. OXALIPLATIN [Concomitant]
     Active Substance: OXALIPLATIN
  14. DEXAMETHASONE [Concomitant]
     Active Substance: DEXAMETHASONE
     Dosage: 10 MG X1 ON DAY +5
  15. DEXAMETHASONE [Concomitant]
     Active Substance: DEXAMETHASONE
     Dosage: ON DAY +6
  16. DEXAMETHASONE [Concomitant]
     Active Substance: DEXAMETHASONE
     Dosage: ON DAY +7, THEN TAPERED OVER 14 DAYS

REACTIONS (1)
  - Disease progression [Unknown]
